FAERS Safety Report 4929399-4 (Version None)
Quarter: 2006Q1

REPORT INFORMATION
  Report Type: 
  Country: None (occurrence: None)
  Receive Date: 20060224
  Receipt Date: 20060127
  Transmission Date: 20060701
  Serious: Yes (Death, Other)
  Sender: FDA-Public Use
  Company Number: A-JP2005-10957

PATIENT
  Age: 72 Year
  Sex: Female
  Weight: 44 kg

DRUGS (10)
  1. TRACLEER [Suspect]
     Indication: PULMONARY HYPERTENSION
     Dosage: 62.5 MG, QD, ORAL
     Route: 048
     Dates: start: 20051025, end: 20051103
  2. EPOPROSTENOL SODIUM            (EPOPROSTENOL SODIUM) [Suspect]
     Dates: end: 20050519
  3. FUROSEMIDE [Concomitant]
  4. SPIRONOLACTONE [Concomitant]
  5. LEVOTHYROXINE SODIUM [Concomitant]
  6. PREDNISOLONE [Concomitant]
  7. ............ [Concomitant]
  8. OMEPRAZOLE [Concomitant]
  9. ALLOPURINOL [Concomitant]
  10. ALFACALCIDOL (ALFACALCIDOL) [Concomitant]

REACTIONS (4)
  - GENERAL PHYSICAL HEALTH DETERIORATION [None]
  - HAEMOGLOBIN DECREASED [None]
  - PLATELET COUNT DECREASED [None]
  - SHOCK [None]
